FAERS Safety Report 5599640-6 (Version None)
Quarter: 2008Q1

REPORT INFORMATION
  Report Type: 
  Country: None (occurrence: None)
  Receive Date: 20080123
  Receipt Date: 20080110
  Transmission Date: 20080703
  Serious: Yes (Hospitalization)
  Sender: FDA-Public Use
  Company Number: ES-BRISTOL-MYERS SQUIBB COMPANY-14031454

PATIENT
  Age: 61 Year
  Sex: Female

DRUGS (7)
  1. METFORMIN HCL [Suspect]
     Indication: DIABETES MELLITUS
     Route: 048
  2. CAPTOPRIL [Suspect]
  3. DICLOFENAC SODIUM [Suspect]
     Indication: ARTHRALGIA
  4. NAPROXEN SODIUM [Suspect]
     Indication: ARTHRALGIA
  5. GLYBURIDE [Suspect]
     Indication: DIABETES MELLITUS
  6. LEVOTHYROXINE SODIUM [Suspect]
  7. ROFECOXIB [Suspect]
     Indication: ARTHRALGIA

REACTIONS (1)
  - LACTIC ACIDOSIS [None]
